FAERS Safety Report 6875593-5 (Version None)
Quarter: 2010Q3

REPORT INFORMATION
  Report Type: 
  Country: None (occurrence: None)
  Receive Date: 20100727
  Receipt Date: 20100717
  Transmission Date: 20110219
  Serious: Yes (Other)
  Sender: FDA-Public Use
  Company Number: FR-JNJFOC-20100705579

PATIENT
  Sex: Female

DRUGS (10)
  1. LEUSTAT [Suspect]
     Indication: LANGERHANS' CELL HISTIOCYTOSIS
     Dosage: 9MG/M^2/D CONTINUOUSLY FOR 5 CONSECUTIVE DAYS. A DOSE OF 0.3 MG/KG/D FOR BODY WEIGHT BELOW 10 KG
     Route: 042
  2. LEUSTAT [Suspect]
     Route: 042
  3. CYTARABINE [Suspect]
     Indication: LANGERHANS' CELL HISTIOCYTOSIS
     Route: 042
  4. VINBLASTINE SULFATE [Suspect]
     Indication: LANGERHANS' CELL HISTIOCYTOSIS
     Dosage: 4 DOSES OF 6 MG/M^2/D
     Route: 065
  5. CORTICOSTEROID [Suspect]
     Indication: LANGERHANS' CELL HISTIOCYTOSIS
     Dosage: 40 MG/M^2/D
     Route: 065
  6. ANTITHYMOCYTE IMMUNOGLOBULIN [Suspect]
     Indication: LANGERHANS' CELL HISTIOCYTOSIS
     Route: 065
  7. ETOPOSIDE [Suspect]
     Indication: LANGERHANS' CELL HISTIOCYTOSIS
     Dosage: 6 PULSES AT 150 MG/M^2/D
     Route: 065
  8. NEUPOGEN [Concomitant]
     Indication: PRODUCT USED FOR UNKNOWN INDICATION
     Route: 065
  9. SULFAMETHOXAZOLE AND TRIMETHOPRIM [Concomitant]
     Indication: ANTIFUNGAL PROPHYLAXIS
     Route: 065
  10. ANTIEMETICS [Concomitant]
     Indication: VOMITING
     Route: 065

REACTIONS (3)
  - ANAEMIA HAEMOLYTIC AUTOIMMUNE [None]
  - NEUTROPENIA [None]
  - PYREXIA [None]
